FAERS Safety Report 9648181 (Version 3)
Quarter: 2013Q4

REPORT INFORMATION
  Report Type: Report from Study
  Country: JP (occurrence: JP)
  Receive Date: 20131028
  Receipt Date: 20131203
  Transmission Date: 20140711
  Serious: Yes (Other)
  Sender: FDA-Public Use
  Company Number: PHHY2012JP115876

PATIENT
  Age: 39 Year
  Sex: Female

DRUGS (22)
  1. LEPONEX / CLOZARIL [Suspect]
     Indication: SCHIZOPHRENIA
     Dosage: 12.5 MG, UNK
     Route: 048
     Dates: start: 20120628, end: 20120628
  2. LEPONEX / CLOZARIL [Suspect]
     Indication: SCHIZOPHRENIA, PARANOID TYPE
     Dosage: 25 MG, UNK
     Route: 048
     Dates: start: 20120629, end: 20120701
  3. LEPONEX / CLOZARIL [Suspect]
     Dosage: 50 MG, UNK
     Route: 048
     Dates: start: 20120702, end: 20120704
  4. LEPONEX / CLOZARIL [Suspect]
     Dosage: 75 MG, UNK
     Route: 048
     Dates: start: 20120705, end: 20130706
  5. LEPONEX / CLOZARIL [Suspect]
     Dosage: 100 MG, UNK
     Route: 048
     Dates: start: 20130707, end: 20130708
  6. LEPONEX / CLOZARIL [Suspect]
     Dosage: 125 MG, UNK
     Route: 048
     Dates: start: 20120709, end: 20120711
  7. LEPONEX / CLOZARIL [Suspect]
     Dosage: 175 MG, UNK
     Route: 048
     Dates: start: 20120712, end: 20120715
  8. LEPONEX / CLOZARIL [Suspect]
     Dosage: 225 MG, UNK
     Route: 048
     Dates: start: 20120716, end: 20120718
  9. LEPONEX / CLOZARIL [Suspect]
     Dosage: 250 MG, UNK
     Route: 048
     Dates: start: 20120719, end: 20120720
  10. LEPONEX / CLOZARIL [Suspect]
     Dosage: 275 MG, UNK
     Route: 048
     Dates: start: 20120721, end: 20120722
  11. LEPONEX / CLOZARIL [Suspect]
     Dosage: 300 MG, UNK
     Route: 048
     Dates: start: 20120723, end: 20130725
  12. LEPONEX / CLOZARIL [Suspect]
     Dosage: 350 MG, UNK
     Route: 048
     Dates: start: 20120726, end: 20130729
  13. LEPONEX / CLOZARIL [Suspect]
     Dosage: 400 MG, UNK
     Route: 048
     Dates: start: 20120730, end: 20120801
  14. LEPONEX / CLOZARIL [Suspect]
     Dosage: 450 MG, UNK
     Route: 048
     Dates: start: 20130802, end: 20130805
  15. LEPONEX / CLOZARIL [Suspect]
     Dosage: 500 MG, UNK
     Route: 048
     Dates: start: 20120806, end: 20120815
  16. LEPONEX / CLOZARIL [Suspect]
     Dosage: 550 MG, UNK
     Route: 048
     Dates: start: 20120816, end: 20120822
  17. LEPONEX / CLOZARIL [Suspect]
     Dosage: 600 MG, UNK
     Route: 048
     Dates: start: 20120823, end: 20120926
  18. LEPONEX / CLOZARIL [Suspect]
     Dosage: 500 MG, UNK
     Route: 048
     Dates: start: 20120827, end: 20121017
  19. LEPONEX / CLOZARIL [Suspect]
     Dosage: 400 MG, UNK
     Route: 048
     Dates: start: 20121018, end: 20121205
  20. LEPONEX / CLOZARIL [Suspect]
     Dosage: 300 MG, UNK
     Route: 048
     Dates: start: 20121206, end: 20121206
  21. LIMAS [Concomitant]
     Dosage: 400 MG, UNK
     Route: 048
  22. LAMICTAL [Concomitant]
     Dosage: 400 MG, UNK
     Route: 048

REACTIONS (5)
  - Extrapyramidal disorder [Recovered/Resolved]
  - Akathisia [Recovered/Resolved]
  - Dystonia [Recovered/Resolved]
  - White blood cell count increased [Recovered/Resolved]
  - Neutrophil count increased [Recovered/Resolved]
